FAERS Safety Report 7604844-4 (Version None)
Quarter: 2011Q3

REPORT INFORMATION
  Report Type: 
  Country: None (occurrence: None)
  Receive Date: 20110712
  Receipt Date: 20110606
  Transmission Date: 20111222
  Serious: Yes (Other)
  Sender: FDA-Public Use
  Company Number: GB-WATSON-2011-07824

PATIENT
  Sex: Female

DRUGS (1)
  1. CRINONE [Suspect]
     Indication: INFERTILITY FEMALE
     Dosage: UNK
     Route: 065

REACTIONS (2)
  - DRUG INEFFECTIVE [None]
  - ABORTION SPONTANEOUS [None]
